FAERS Safety Report 9482310 (Version 2)
Quarter: 2013Q3

REPORT INFORMATION
  Report Type: Spontaneous
  Country: GB (occurrence: GB)
  Receive Date: 20130828
  Receipt Date: 20130909
  Transmission Date: 20140515
  Serious: Yes (Hospitalization, Other)
  Sender: FDA-Public Use
  Company Number: GB-ELI_LILLY_AND_COMPANY-GB201308005524

PATIENT
  Age: 15 Year
  Sex: Male

DRUGS (3)
  1. OLANZAPINE [Suspect]
     Indication: PSYCHOTIC DISORDER
     Dosage: 5 MG, QD
     Route: 048
     Dates: start: 201212, end: 20130730
  2. OLANZAPINE [Suspect]
     Dosage: 15 MG, QD
  3. XEPLION /05724802/ [Suspect]
     Indication: HEPATITIS C
     Dosage: 100 MG, OTHER
     Route: 030
     Dates: start: 201212, end: 20130815

REACTIONS (2)
  - Hepatitis C [Unknown]
  - Glycosylated haemoglobin increased [Not Recovered/Not Resolved]
